FAERS Safety Report 4725794-7 (Version None)
Quarter: 2005Q3

REPORT INFORMATION
  Report Type: 
  Country: None (occurrence: None)
  Receive Date: 20050722
  Receipt Date: 20050722
  Transmission Date: 20060218
  Serious: Yes (Other)
  Sender: FDA-Public Use
  Company Number: None

PATIENT
  Age: 45 Year
  Sex: Male
  Weight: 122 kg

DRUGS (1)
  1. RAPTIVA [Suspect]
     Indication: PSORIASIS
     Dosage: 122MG  WEEKLY SUBCUTANEOUS
     Route: 058
     Dates: start: 20040625, end: 20050724

REACTIONS (3)
  - HEADACHE [None]
  - NO REACTION ON PREVIOUS EXPOSURE TO DRUG [None]
  - THERAPY NON-RESPONDER [None]
